FAERS Safety Report 11457070 (Version 1)
Quarter: 2015Q3

REPORT INFORMATION
  Report Type: Spontaneous
  Country: US (occurrence: None)
  Receive Date: 20150902
  Receipt Date: 20150902
  Transmission Date: 20151125
  Serious: Yes (Hospitalization, Disabling, Other)
  Sender: FDA-Public Use
  Company Number: 003-315

PATIENT
  Age: 14 Month
  Sex: Female

DRUGS (1)
  1. CROFAB [Suspect]
     Active Substance: CROTALIDAE POLYVALENT IMMUNE FAB (OVINE)
     Indication: SNAKE BITE
     Dates: start: 200105

REACTIONS (6)
  - Coagulopathy [None]
  - Cerebral haemorrhage [None]
  - Haemangioma [None]
  - Peroneal nerve palsy [None]
  - Hemiparesis [None]
  - Paralysis [None]

NARRATIVE: CASE EVENT DATE: 200105
